FAERS Safety Report 9049826 (Version 1)
Quarter: 2013Q1

REPORT INFORMATION
  Report Type: Spontaneous
  Country: CA (occurrence: CA)
  Receive Date: 20130206
  Receipt Date: 20130206
  Transmission Date: 20140127
  Serious: Yes (Hospitalization)
  Sender: FDA-Public Use
  Company Number: CA-AMGEN-CANSP2013006747

PATIENT
  Age: 80 Year
  Sex: Female

DRUGS (3)
  1. ENBREL [Suspect]
     Indication: RHEUMATOID ARTHRITIS
     Dosage: 1 X WEEKLY
     Dates: start: 20101221
  2. NIFEDIPIN [Concomitant]
     Dosage: 60 MG AND 160 MG
  3. PREDNISONE [Concomitant]
     Dosage: UNK

REACTIONS (2)
  - Cystitis [Recovering/Resolving]
  - Bladder prolapse [Recovering/Resolving]
